FAERS Safety Report 8345528-7 (Version None)
Quarter: 2012Q2

REPORT INFORMATION
  Report Type: 
  Country: None (occurrence: None)
  Receive Date: 20120508
  Receipt Date: 20120504
  Transmission Date: 20120825
  Serious: Yes (Hospitalization, Other)
  Sender: FDA-Public Use
  Company Number: US-GILEAD-2012-0053358

PATIENT
  Sex: Male

DRUGS (5)
  1. LETAIRIS [Suspect]
     Indication: HYPOXIA
  2. LETAIRIS [Suspect]
     Indication: MITRAL VALVE INCOMPETENCE
  3. REVATIO [Concomitant]
  4. LETAIRIS [Suspect]
     Indication: PULMONARY HYPERTENSION
     Dosage: 10 MG, UNK
     Route: 048
     Dates: start: 20120113
  5. LETAIRIS [Suspect]
     Indication: DIASTOLIC DYSFUNCTION

REACTIONS (4)
  - RIGHT VENTRICULAR FAILURE [None]
  - CARDIAC PACEMAKER INSERTION [None]
  - ATRIAL FIBRILLATION [None]
  - THERAPEUTIC PROCEDURE [None]
